FAERS Safety Report 18531129 (Version 1)
Quarter: 2020Q4

REPORT INFORMATION
  Report Type: Report from Study
  Country: BR (occurrence: BR)
  Receive Date: 20201122
  Receipt Date: 20201122
  Transmission Date: 20210114
  Serious: Yes (Other)
  Sender: FDA-Public Use
  Company Number: NVSC2020BR307671

PATIENT
  Age: 62 Year
  Sex: Female

DRUGS (1)
  1. DIOVAN [Suspect]
     Active Substance: VALSARTAN
     Indication: PRODUCT USED FOR UNKNOWN INDICATION
     Dosage: UNK UNK, BID (325/12.5 1 IN THE MORNING AND ONE IN EVENING SINCE 3 OR 5 YEARS AGO)
     Route: 065

REACTIONS (3)
  - Syncope [Recovered/Resolved]
  - Product prescribing error [Unknown]
  - Obesity [Unknown]

NARRATIVE: CASE EVENT DATE: 20201029
